FAERS Safety Report 5533407-X (Version None)
Quarter: 2007Q4

REPORT INFORMATION
  Report Type: 
  Country: None (occurrence: None)
  Receive Date: 20071204
  Receipt Date: 20071126
  Transmission Date: 20080405
  Serious: Yes (Hospitalization, Other)
  Sender: FDA-Public Use
  Company Number: JP-PFIZER INC-2007097542

PATIENT
  Age: 46 Year
  Sex: Female

DRUGS (8)
  1. ZOLOFT [Suspect]
     Indication: DEPRESSION
     Route: 048
     Dates: start: 20071029, end: 20071111
  2. ZOLOFT [Suspect]
  3. DOGMATYL [Concomitant]
     Indication: NEUROSIS
  4. TETRAMIDE [Concomitant]
     Indication: DEPRESSION
     Route: 048
  5. RIZE [Concomitant]
     Indication: ANXIETY
     Route: 048
     Dates: start: 20070413, end: 20071111
  6. GASMOTIN [Concomitant]
     Route: 048
     Dates: start: 20071029, end: 20071111
  7. LENDORMIN [Concomitant]
     Indication: INSOMNIA
     Route: 048
  8. MUCOSTA [Concomitant]
     Route: 048
     Dates: start: 20071029, end: 20071111

REACTIONS (3)
  - HEPATIC ENZYME INCREASED [None]
  - ORAL INTAKE REDUCED [None]
  - SEROTONIN SYNDROME [None]
